FAERS Safety Report 7366765-4 (Version None)
Quarter: 2011Q1

REPORT INFORMATION
  Report Type: 
  Country: None (occurrence: None)
  Receive Date: 20110322
  Receipt Date: 20110318
  Transmission Date: 20110831
  Serious: Yes (Other)
  Sender: FDA-Public Use
  Company Number: US-PFIZER INC-2011060495

PATIENT
  Sex: Female
  Weight: 58.503 kg

DRUGS (5)
  1. DIFLUCAN [Suspect]
     Indication: CANDIDIASIS
     Dosage: 150 MG, 1X/DAY
     Route: 048
     Dates: start: 20101103, end: 20100101
  2. DIFLUCAN [Suspect]
     Dosage: 150 MG, WEEKLY
     Route: 048
  3. DIFLUCAN [Suspect]
     Dosage: 150 MG, 1X/DAY
     Route: 048
     Dates: start: 20101213
  4. CELEBREX [Concomitant]
     Indication: PUBIC PAIN
     Dosage: 200 MG, DAILY
  5. ZITHROMAX [Concomitant]
     Indication: PELVIC INFLAMMATORY DISEASE
     Dosage: UNK

REACTIONS (4)
  - VAGINAL DISCHARGE [None]
  - STAPHYLOCOCCUS TEST POSITIVE [None]
  - PRURITUS [None]
  - CANDIDA TEST POSITIVE [None]
